FAERS Safety Report 12457747 (Version 2)
Quarter: 2016Q3

REPORT INFORMATION
  Report Type: Spontaneous
  Country: TW (occurrence: TW)
  Receive Date: 20160611
  Receipt Date: 20160714
  Transmission Date: 20161109
  Serious: Yes (Hospitalization)
  Sender: FDA-Public Use
  Company Number: TW-ABBVIE-16K-153-1643571-00

PATIENT
  Age: 61 Year
  Sex: Female
  Weight: 36.5 kg

DRUGS (3)
  1. PREDNISOLONE. [Concomitant]
     Active Substance: PREDNISOLONE
     Indication: PRODUCT USED FOR UNKNOWN INDICATION
  2. HUMIRA [Suspect]
     Active Substance: ADALIMUMAB
     Indication: RHEUMATOID ARTHRITIS
     Route: 058
     Dates: start: 20151211, end: 20160429
  3. METHOTREXATE. [Concomitant]
     Active Substance: METHOTREXATE
     Indication: PRODUCT USED FOR UNKNOWN INDICATION

REACTIONS (18)
  - Hypokalaemia [Unknown]
  - C-reactive protein increased [Unknown]
  - Lung infiltration [Unknown]
  - Haemoglobin decreased [Unknown]
  - Atypical pneumonia [Unknown]
  - Decreased appetite [Unknown]
  - Pneumocystis jirovecii pneumonia [Unknown]
  - Respiratory failure [Not Recovered/Not Resolved]
  - Sputum discoloured [Unknown]
  - Hyponatraemia [Unknown]
  - Cardiomegaly [Unknown]
  - Pneumonia [Unknown]
  - Blood creatine phosphokinase increased [Unknown]
  - Blood lactic acid increased [Unknown]
  - Productive cough [Unknown]
  - Troponin I increased [Unknown]
  - Blood calcium decreased [Unknown]
  - Aspartate aminotransferase increased [Unknown]

NARRATIVE: CASE EVENT DATE: 20160528
